FAERS Safety Report 6946030-7 (Version None)
Quarter: 2010Q3

REPORT INFORMATION
  Report Type: 
  Country: None (occurrence: None)
  Receive Date: 20100827
  Receipt Date: 20100819
  Transmission Date: 20110219
  Serious: Yes (Hospitalization)
  Sender: FDA-Public Use
  Company Number: JP-ABBOTT-10P-087-0665359-00

PATIENT
  Age: 74 Year
  Sex: Female
  Weight: 46.9 kg

DRUGS (12)
  1. CLARITHROMYCIN [Suspect]
     Indication: ATYPICAL MYCOBACTERIAL INFECTION
     Dates: start: 20090121, end: 20090204
  2. EBUTOL [Concomitant]
     Indication: ATYPICAL MYCOBACTERIAL INFECTION
     Dates: start: 20090121, end: 20090204
  3. EBUTOL [Concomitant]
     Dates: start: 20090220
  4. RIFADIN [Concomitant]
     Indication: ATYPICAL MYCOBACTERIAL INFECTION
     Dates: start: 20090121, end: 20090204
  5. MUCOSOLVAN [Concomitant]
     Indication: PROPHYLAXIS
     Route: 048
     Dates: end: 20090204
  6. FAMOSTAGINE [Concomitant]
     Indication: PROPHYLAXIS
     Route: 048
     Dates: end: 20090202
  7. SELBEX [Concomitant]
     Indication: PROPHYLAXIS
     Route: 048
     Dates: end: 20090202
  8. GLAKAY [Concomitant]
     Indication: PROPHYLAXIS
     Route: 048
     Dates: end: 20090202
  9. CALFINA [Concomitant]
     Indication: PROPHYLAXIS
     Route: 048
     Dates: end: 20090202
  10. TALION [Concomitant]
     Indication: PROPHYLAXIS
     Route: 048
  11. NEOMALLERMIN TR [Concomitant]
     Indication: PROPHYLAXIS
     Route: 048
  12. PONCYL FP [Concomitant]
     Indication: PROPHYLAXIS
     Route: 048
     Dates: end: 20090202

REACTIONS (1)
  - ERYTHEMA [None]
